FAERS Safety Report 14422323 (Version 2)
Quarter: 2018Q1

REPORT INFORMATION
  Report Type: Report from Study
  Country: NL (occurrence: NL)
  Receive Date: 20180123
  Receipt Date: 20180322
  Transmission Date: 20180509
  Serious: Yes (Hospitalization)
  Sender: FDA-Public Use
  Company Number: NL-SUN PHARMACEUTICAL INDUSTRIES LTD-2018RR-161088

PATIENT
  Age: 52 Year
  Sex: Male
  Weight: 67 kg

DRUGS (4)
  1. SONIDEGIB [Suspect]
     Active Substance: SONIDEGIB
     Indication: PANCREATIC CARCINOMA
     Dosage: UNK QD
     Route: 048
     Dates: start: 20171006, end: 20171207
  2. GEMCITABINE [Suspect]
     Active Substance: GEMCITABINE\GEMCITABINE HYDROCHLORIDE
     Indication: PANCREATIC CARCINOMA
     Dosage: 1800 MG, 3X/4WEEKS
     Route: 042
     Dates: start: 20171006, end: 20171124
  3. PARACETAMOL [Concomitant]
     Active Substance: ACETAMINOPHEN
     Indication: PRODUCT USED FOR UNKNOWN INDICATION
     Dosage: UNK
     Route: 065
     Dates: start: 20171219
  4. ABRAXANE [Suspect]
     Active Substance: PACLITAXEL
     Indication: PANCREATIC CARCINOMA
     Dosage: 225 MG 3X/4 WEEKS
     Route: 042
     Dates: start: 20171006, end: 20171124

REACTIONS (1)
  - Ascites [Recovered/Resolved]

NARRATIVE: CASE EVENT DATE: 20171217
